FAERS Safety Report 7558805-4 (Version None)
Quarter: 2011Q2

REPORT INFORMATION
  Report Type: 
  Country: None (occurrence: None)
  Receive Date: 20110621
  Receipt Date: 20110617
  Transmission Date: 20111010
  Serious: Yes (Other)
  Sender: FDA-Public Use
  Company Number: US-ASTRAZENECA-2011SE17477

PATIENT
  Age: 296 Month
  Sex: Female
  Weight: 79.4 kg

DRUGS (15)
  1. ACTOS [Concomitant]
     Route: 048
     Dates: start: 20100510
  2. MEGESTROL ACETATE [Concomitant]
     Route: 048
     Dates: start: 20070509
  3. KETOPROFEN [Concomitant]
     Indication: PAIN
     Dosage: TAKE 1 CAPSULE BY MOUTH EVERY 6 HOURS AS NEEDED
     Route: 048
     Dates: start: 20070706
  4. SERTRALINE [Concomitant]
     Dosage: 100 MG TK 2 TS PO QD
     Route: 048
     Dates: start: 20070606
  5. AMITRIPTYLINE HCL [Concomitant]
     Route: 048
     Dates: start: 20100510
  6. KETOCONAZOLE [Concomitant]
     Route: 048
     Dates: start: 20100510
  7. IMITREX [Concomitant]
     Indication: HEADACHE
     Dates: start: 20050101
  8. GLIPIZIDE [Concomitant]
     Route: 048
     Dates: start: 20100510
  9. HYDROXYZINE HCL [Concomitant]
     Indication: PRURITUS
     Dosage: 25 MG TK 1 T PO TID PRF
     Route: 048
     Dates: start: 20070606
  10. PROMETHAZINE HCL [Concomitant]
     Route: 048
     Dates: start: 20100510
  11. HYDROXYZINE HCL [Concomitant]
     Indication: RASH
     Dosage: 25 MG TK 1 T PO TID PRF
     Route: 048
     Dates: start: 20070606
  12. SEROQUEL [Suspect]
     Dosage: 200 MG TK 1/2 TO 1 T PO QHS
     Route: 048
     Dates: start: 20070525
  13. NADOLOL [Concomitant]
     Route: 048
     Dates: start: 20100510
  14. ACIPHEX [Concomitant]
     Route: 048
     Dates: start: 20100510
  15. PENICILLINE VK [Concomitant]
     Dosage: 500 MG TK 2 TS PO NOW THEN 1 PO QID UNTILL GONE
     Route: 048
     Dates: start: 20070613

REACTIONS (9)
  - RIFT VALLEY FEVER [None]
  - ASTHMA [None]
  - TYPE 2 DIABETES MELLITUS [None]
  - DIARRHOEA [None]
  - WEIGHT INCREASED [None]
  - DIABETIC NEUROPATHY [None]
  - STRESS [None]
  - IMPAIRED GASTRIC EMPTYING [None]
  - HAEMORRHOIDS [None]
